FAERS Safety Report 24709334 (Version 1)
Quarter: 2024Q4

REPORT INFORMATION
  Report Type: Spontaneous
  Country: CA (occurrence: CA)
  Receive Date: 20241208
  Receipt Date: 20241208
  Transmission Date: 20250114
  Serious: Yes (Hospitalization, Other)
  Sender: KVK-TECH
  Company Number: CA-KVK-TECH, INC-20241100177

PATIENT

DRUGS (3)
  1. INDOMETHACIN [Suspect]
     Active Substance: INDOMETHACIN
     Indication: Headache
     Dosage: 25 MILLIGRAM, TID (AS NEEDED)
     Route: 048
  2. TRANDOLAPRIL [Concomitant]
     Active Substance: TRANDOLAPRIL
     Indication: Hypertension
     Dosage: 4 MILLIGRAM, QD
     Route: 048
  3. PANTOPRAZOLE [Concomitant]
     Active Substance: PANTOPRAZOLE
     Indication: Product used for unknown indication
     Dosage: 40 MILLIGRAM, QD
     Route: 048

REACTIONS (1)
  - Hypertensive encephalopathy [Recovered/Resolved]
